FAERS Safety Report 23312269 (Version 2)
Quarter: 2025Q4

REPORT INFORMATION
  Report Type: Spontaneous
  Country: US (occurrence: US)
  Receive Date: 20231219
  Receipt Date: 20251117
  Transmission Date: 20260118
  Serious: No
  Sender: ELI LILLY AND COMPANY
  Company Number: US-ELI_LILLY_AND_COMPANY-US202312009514

PATIENT
  Age: 49 Year
  Sex: Male

DRUGS (5)
  1. LYUMJEV [Suspect]
     Active Substance: INSULIN LISPRO-AABC
     Indication: Diabetes mellitus
     Dosage: 6 U, DAILY
     Route: 058
     Dates: start: 202306
  2. LYUMJEV KWIKPEN [Suspect]
     Active Substance: INSULIN LISPRO
     Indication: Diabetes mellitus
     Dosage: 3 U, UNKNOWN
     Route: 065
     Dates: start: 2023
  3. LYUMJEV KWIKPEN [Suspect]
     Active Substance: INSULIN LISPRO
     Dosage: 3 U, UNKNOWN
     Route: 065
  4. LYUMJEV KWIKPEN [Suspect]
     Active Substance: INSULIN LISPRO
     Dosage: 15 U, UNKNOWN
     Route: 065
     Dates: start: 20251029
  5. TRESIBA [Concomitant]
     Active Substance: INSULIN DEGLUDEC
     Indication: Diabetes mellitus
     Dosage: 50 U, DAILY
     Route: 065
     Dates: start: 202306

REACTIONS (5)
  - Drug ineffective [Recovered/Resolved]
  - Glycosylated haemoglobin increased [Recovered/Resolved]
  - Blood glucose increased [Recovered/Resolved]
  - Product storage error [Unknown]
  - Blood glucose increased [Unknown]

NARRATIVE: CASE EVENT DATE: 20231211
